FAERS Safety Report 9476220 (Version 3)
Quarter: 2013Q3

REPORT INFORMATION
  Report Type: Spontaneous
  Country: US (occurrence: US)
  Receive Date: 20130826
  Receipt Date: 20130916
  Transmission Date: 20140515
  Serious: Yes (Hospitalization, Other)
  Sender: FDA-Public Use
  Company Number: US-009507513-1308USA010339

PATIENT
  Age: 36 Year
  Sex: Female
  Weight: 90.7 kg

DRUGS (8)
  1. MAXALT [Suspect]
     Indication: MIGRAINE
     Dosage: 5 MG, PRN
     Route: 048
     Dates: start: 20130524, end: 2013
  2. PROVENTIL [Concomitant]
  3. PROTONIX [Concomitant]
     Dosage: 1 DF, QD
     Dates: start: 20130116
  4. SERICOCALYX CRISPUS [Concomitant]
     Dosage: UNK
     Dates: start: 20130621
  5. DICLOFENAC SODIUM [Concomitant]
     Dosage: 1 DF, BID
     Route: 048
  6. CELEXA [Concomitant]
     Dosage: 1 DF, QD
     Route: 048
     Dates: start: 20130116
  7. TRAMADOL HYDROCHLORIDE [Concomitant]
     Dosage: 50 MG, Q6H
     Route: 048
  8. ERYTHROMYCIN [Concomitant]

REACTIONS (8)
  - Hypersensitivity [Recovered/Resolved]
  - Pharyngeal oedema [Recovered/Resolved]
  - Bronchial hyperreactivity [Recovered/Resolved]
  - Arthritis [Unknown]
  - Vulvovaginal candidiasis [Unknown]
  - Cough [Unknown]
  - Fungal infection [Unknown]
  - Pain [Unknown]
